FAERS Safety Report 6674052-2 (Version None)
Quarter: 2010Q1

REPORT INFORMATION
  Report Type: 
  Country: None (occurrence: None)
  Receive Date: 20100329
  Receipt Date: 20091030
  Transmission Date: 20100710
  Serious: Yes (Other)
  Sender: FDA-Public Use
  Company Number: 2009291973

PATIENT
  Sex: Female

DRUGS (2)
  1. GEODON [Suspect]
     Dosage: 20 MG, 2X/DAY
     Dates: end: 20091001
  2. CELEXA [Concomitant]

REACTIONS (1)
  - CONVULSION [None]
